FAERS Safety Report 4456602-X (Version None)
Quarter: 2004Q3

REPORT INFORMATION
  Report Type: 
  Country: None (occurrence: None)
  Receive Date: 20040917
  Receipt Date: 20040914
  Transmission Date: 20050211
  Serious: Yes (Hospitalization)
  Sender: FDA-Public Use
  Company Number: 203852

PATIENT
  Age: 52 Year
  Sex: Female
  Weight: 113.4 kg

DRUGS (5)
  1. XOLAIR [Suspect]
     Indication: ASTHMA
     Dosage: 225 MG, Q2W, SUBCUTANEOUS
     Route: 058
     Dates: start: 20031120, end: 20031204
  2. ZYRTEC [Concomitant]
  3. NASACORT [Concomitant]
  4. SEREVENT [Concomitant]
  5. FLOVENT [Concomitant]

REACTIONS (8)
  - CHILLS [None]
  - DIARRHOEA [None]
  - DIZZINESS [None]
  - EYE SWELLING [None]
  - NASAL CONGESTION [None]
  - PNEUMONIA [None]
  - PYREXIA [None]
  - WHEEZING [None]
